FAERS Safety Report 9667875 (Version 1)
Quarter: 2013Q4

REPORT INFORMATION
  Report Type: Spontaneous
  Country: AU (occurrence: AU)
  Receive Date: 20131104
  Receipt Date: 20131104
  Transmission Date: 20140711
  Serious: Yes (Other)
  Sender: FDA-Public Use
  Company Number: AU-PFIZER INC-2013312864

PATIENT
  Age: 81 Year
  Sex: Female

DRUGS (3)
  1. LYRICA [Suspect]
     Dosage: 25 MG TWICE DAILY
     Dates: start: 201310
  2. VENTOLIN [Concomitant]
     Dosage: UNK
  3. SERETIDE [Concomitant]
     Dosage: UNK

REACTIONS (1)
  - Asthma [Unknown]
